FAERS Safety Report 7245476-X (Version None)
Quarter: 2011Q1

REPORT INFORMATION
  Report Type: 
  Country: None (occurrence: None)
  Receive Date: 20110118
  Receipt Date: 20110105
  Transmission Date: 20110831
  Serious: Yes (Death)
  Sender: FDA-Public Use
  Company Number: 796535

PATIENT
  Age: 25 Year
  Sex: Male

DRUGS (16)
  1. FLUCONAZOLE [Suspect]
     Indication: ORAL CANDIDIASIS
  2. MOXIFLOXACIN [Suspect]
     Indication: TUBERCULOSIS
  3. EFAVIRENZ [Concomitant]
  4. CLOFAZIMINE [Concomitant]
  5. CYCLOSERINE [Concomitant]
  6. PROTHIONAMIDE [Concomitant]
  7. VALGANCICLOVIR HCL [Concomitant]
  8. DARUNAVIR ETHANOLATE [Concomitant]
  9. ONDANSETRON [Suspect]
     Indication: PRODUCT USED FOR UNKNOWN INDICATION
  10. AMIKACIN [Concomitant]
  11. LINEZOLID [Concomitant]
  12. ETHAMBUTOL HYDROCHLORIDE [Concomitant]
  13. PYRAZINAMIDE [Concomitant]
  14. RITONAVIR [Suspect]
     Indication: HIV INFECTION
  15. HEPARIN [Concomitant]
  16. TRUVADA [Concomitant]

REACTIONS (9)
  - HIV INFECTION [None]
  - CYTOMEGALOVIRUS TEST POSITIVE [None]
  - ARRHYTHMIA [None]
  - WHITE BLOOD CELL COUNT DECREASED [None]
  - MENTAL DISORDER [None]
  - HAEMOGLOBIN DECREASED [None]
  - TUBERCULOSIS [None]
  - ORAL CANDIDIASIS [None]
  - BLOOD POTASSIUM ABNORMAL [None]
